FAERS Safety Report 25452195 (Version 1)
Quarter: 2025Q2

REPORT INFORMATION
  Report Type: Spontaneous
  Country: FR (occurrence: FR)
  Receive Date: 20250618
  Receipt Date: 20250618
  Transmission Date: 20250717
  Serious: Yes (Hospitalization)
  Sender: AMERICAN REGENT
  Company Number: FR-AMERICAN REGENT INC-2025002447

PATIENT
  Age: 30 Year
  Sex: Female
  Weight: 100 kg

DRUGS (2)
  1. FERINJECT [Suspect]
     Active Substance: FERRIC CARBOXYMALTOSE
     Indication: Anaemia
     Route: 042
     Dates: start: 20250520, end: 20250520
  2. Wecovy [Concomitant]
     Indication: Product used for unknown indication
     Route: 065
     Dates: start: 20250517

REACTIONS (1)
  - Acute generalised exanthematous pustulosis [Recovering/Resolving]

NARRATIVE: CASE EVENT DATE: 20250520
